FAERS Safety Report 5178905-6 (Version None)
Quarter: 2006Q4

REPORT INFORMATION
  Report Type: 
  Country: None (occurrence: None)
  Receive Date: 20061208
  Receipt Date: 20061122
  Transmission Date: 20070319
  Serious: Yes (Hospitalization)
  Sender: FDA-Public Use
  Company Number: TRP_0891_2006

PATIENT
  Age: 42 Year
  Sex: Male
  Weight: 86.637 kg

DRUGS (3)
  1. RIBASPHERE [Suspect]
     Indication: HEPATITIS C
     Dosage: DF PO
     Route: 048
     Dates: start: 20060811, end: 20061001
  2. RIBASPHERE [Suspect]
     Indication: HEPATITIS C
     Dosage: DF PO
     Route: 048
     Dates: start: 20061001
  3. PEG-INTRON [Suspect]
     Indication: HEPATITIS C
     Dosage: DF SC
     Route: 058
     Dates: start: 20060811

REACTIONS (12)
  - ANAEMIA [None]
  - BLOOD POTASSIUM INCREASED [None]
  - COUGH [None]
  - DYSURIA [None]
  - HYPERTENSION [None]
  - LOCAL SWELLING [None]
  - PENILE HAEMORRHAGE [None]
  - RENAL IMPAIRMENT [None]
  - SWELLING FACE [None]
  - TREATMENT NONCOMPLIANCE [None]
  - URINARY RETENTION [None]
  - WEIGHT INCREASED [None]
